FAERS Safety Report 16687139 (Version 1)
Quarter: 2019Q3

REPORT INFORMATION
  Report Type: Spontaneous
  Country: JP (occurrence: JP)
  Receive Date: 20190809
  Receipt Date: 20190809
  Transmission Date: 20191004
  Serious: Yes (Hospitalization, Other)
  Sender: FDA-Public Use
  Company Number: JP-ALEMBIC PHARMACUETICALS LIMITED-2019SCAL000521

PATIENT

DRUGS (2)
  1. METRONIDAZOLE. [Suspect]
     Active Substance: METRONIDAZOLE
     Indication: DOUGLAS^ ABSCESS
     Dosage: UNK
  2. CEFOTAXIME [Concomitant]
     Active Substance: CEFOTAXIME SODIUM
     Indication: DOUGLAS^ ABSCESS
     Dosage: UNK

REACTIONS (6)
  - Vomiting [Recovered/Resolved]
  - Erythema [Recovered/Resolved]
  - Pancytopenia [Recovered/Resolved]
  - Type IV hypersensitivity reaction [Recovered/Resolved]
  - Haemophagocytic lymphohistiocytosis [Recovered/Resolved]
  - Pyrexia [Recovered/Resolved]
